FAERS Safety Report 20344330 (Version 2)
Quarter: 2022Q1

REPORT INFORMATION
  Report Type: Spontaneous
  Country: US (occurrence: US)
  Receive Date: 20220118
  Receipt Date: 20220127
  Transmission Date: 20220423
  Serious: Yes (Other)
  Sender: FDA-Public Use
  Company Number: US-GSKCCFUS-Case-01265360_AE-74009

PATIENT
  Age: 32 Year
  Sex: Male
  Weight: 75.3 kg

DRUGS (3)
  1. SOTROVIMAB [Suspect]
     Active Substance: SOTROVIMAB
     Indication: Product used for unknown indication
     Dosage: 39 ML, RECEIVED 39 MILLILITERS OUT OF 50 MILLILITERS
     Dates: start: 20211227, end: 20211227
  2. IBUPROFEN [Concomitant]
     Active Substance: IBUPROFEN
     Indication: Product used for unknown indication
     Dosage: 400 MG X1
     Route: 048
  3. OCRELIZUMAB [Concomitant]
     Active Substance: OCRELIZUMAB
     Indication: Multiple sclerosis
     Dosage: UNK

REACTIONS (5)
  - Myocarditis [Unknown]
  - Chest discomfort [Unknown]
  - Costochondritis [Unknown]
  - Underdose [Recovered/Resolved]
  - Product administration error [Unknown]

NARRATIVE: CASE EVENT DATE: 20211227
